FAERS Safety Report 16357893 (Version 1)
Quarter: 2019Q2

REPORT INFORMATION
  Report Type: Report from Study
  Country: US (occurrence: US)
  Receive Date: 20190527
  Receipt Date: 20190527
  Transmission Date: 20190711
  Serious: Yes (Other)
  Sender: FDA-Public Use
  Company Number: PHEH2019US021696

PATIENT
  Sex: Female

DRUGS (1)
  1. TASIGNA [Suspect]
     Active Substance: NILOTINIB
     Indication: PRODUCT USED FOR UNKNOWN INDICATION
     Route: 048

REACTIONS (6)
  - Atrial fibrillation [Unknown]
  - Fatigue [Unknown]
  - Pruritus [Unknown]
  - Dyspnoea [Unknown]
  - Cough [Unknown]
  - Joint swelling [Recovered/Resolved]
